FAERS Safety Report 4661382-9 (Version None)
Quarter: 2005Q2

REPORT INFORMATION
  Report Type: 
  Country: None (occurrence: None)
  Receive Date: 20050512
  Receipt Date: 20050125
  Transmission Date: 20051028
  Serious: Yes (Other)
  Sender: FDA-Public Use
  Company Number: 05-05-0781

PATIENT
  Age: 29 Week
  Sex: Male
  Weight: 4.4 kg

DRUGS (3)
  1. LABETALOL [Suspect]
  2. METHYLDOPA [Suspect]
  3. AZATHIOPRINE [Suspect]

REACTIONS (6)
  - DRUG EXPOSURE DURING PREGNANCY [None]
  - HEPATIC FUNCTION ABNORMAL [None]
  - HYPERTENSION [None]
  - PREMATURE BABY [None]
  - VENTRICULAR DYSFUNCTION [None]
  - VENTRICULAR HYPERTROPHY [None]
